FAERS Safety Report 23058128 (Version 1)
Quarter: 2023Q4

REPORT INFORMATION
  Report Type: Spontaneous
  Country: US (occurrence: US)
  Receive Date: 20231012
  Receipt Date: 20231012
  Transmission Date: 20240109
  Serious: Yes (Hospitalization)
  Sender: FDA-Public Use
  Company Number: US-BIOGEN-2023BI01230373

PATIENT
  Sex: Female

DRUGS (2)
  1. TECFIDERA [Suspect]
     Active Substance: DIMETHYL FUMARATE
     Indication: Multiple sclerosis
     Route: 050
     Dates: start: 2021
  2. TECFIDERA [Suspect]
     Active Substance: DIMETHYL FUMARATE
     Route: 050

REACTIONS (7)
  - Multiple sclerosis relapse [Recovered/Resolved]
  - Consciousness fluctuating [Unknown]
  - Fall [Recovered/Resolved]
  - Migraine [Unknown]
  - Abdominal discomfort [Unknown]
  - Muscle spasms [Unknown]
  - Pain [Unknown]
